FAERS Safety Report 24673212 (Version 1)
Quarter: 2024Q4

REPORT INFORMATION
  Report Type: Spontaneous
  Country: US (occurrence: US)
  Receive Date: 20241128
  Receipt Date: 20241128
  Transmission Date: 20250115
  Serious: No
  Sender: IBSA INSTITUT BIOCHIMIQUE
  Company Number: US-IBSA PHARMA INC.-2024IBS000201

PATIENT

DRUGS (2)
  1. TIROSINT [Suspect]
     Active Substance: LEVOTHYROXINE SODIUM
     Indication: Autoimmune thyroiditis
     Dosage: 125 MICROGRAM
     Route: 048
  2. TIROSINT [Suspect]
     Active Substance: LEVOTHYROXINE SODIUM
     Indication: Hypothyroidism
     Dosage: 137 MICROGRAM, QD
     Route: 065
     Dates: start: 2024

REACTIONS (11)
  - Urinary tract infection [None]
  - Feeling abnormal [None]
  - Weight increased [None]
  - Back pain [None]
  - Uterine prolapse [None]
  - Device breakage [Unknown]
  - Thyroid function test abnormal [None]
  - Gait disturbance [None]
  - Spinal disorder [None]
  - Brain fog [None]
  - Insomnia [None]

NARRATIVE: CASE EVENT DATE: 20240401
